FAERS Safety Report 11977240 (Version 2)
Quarter: 2016Q1

REPORT INFORMATION
  Report Type: Spontaneous
  Country: TW (occurrence: TW)
  Receive Date: 20160129
  Receipt Date: 20160216
  Transmission Date: 20160526
  Serious: Yes (Life-Threatening, Hospitalization, Other)
  Sender: FDA-Public Use
  Company Number: TW-ELI_LILLY_AND_COMPANY-TW201601009800

PATIENT
  Age: 49 Year
  Sex: Male

DRUGS (5)
  1. OLANZAPINE. [Interacting]
     Active Substance: OLANZAPINE
     Indication: SCHIZOPHRENIA
     Dosage: 20 MG, QD
     Route: 065
  2. TRIHEXYPHENIDYL [Suspect]
     Active Substance: TRIHEXYPHENIDYL
     Indication: SCHIZOPHRENIA
     Dosage: 2 MG, BID
     Route: 065
  3. SULPIRIDE [Suspect]
     Active Substance: SULPIRIDE
     Dosage: 400 MG, QD
     Route: 065
  4. TRAZODONE [Interacting]
     Active Substance: TRAZODONE HYDROCHLORIDE
     Indication: SCHIZOPHRENIA
     Dosage: 50 MG, QD
     Route: 065
  5. TRIHEXYPHENIDYL [Suspect]
     Active Substance: TRIHEXYPHENIDYL
     Indication: TARDIVE DYSKINESIA

REACTIONS (28)
  - Oxygen saturation decreased [Unknown]
  - Pneumonia aspiration [Unknown]
  - Fatigue [Unknown]
  - Hallucination, auditory [Unknown]
  - Dysphoria [Unknown]
  - Anxiety [Unknown]
  - Insomnia [Unknown]
  - White blood cell count increased [Unknown]
  - Drug interaction [Unknown]
  - Choking [Unknown]
  - Electrocardiogram QT prolonged [Unknown]
  - Tachycardia [Unknown]
  - Acute kidney injury [Recovered/Resolved]
  - Asthenia [Unknown]
  - Tremor [Unknown]
  - Sputum increased [Unknown]
  - Stridor [Unknown]
  - Ventricular arrhythmia [Unknown]
  - Muscle enzyme increased [Recovered/Resolved]
  - Cerebral infarction [Unknown]
  - Cerebellar infarction [Unknown]
  - Dyspnoea [Unknown]
  - Electrocardiogram ST-T change [Unknown]
  - Heat stroke [Recovered/Resolved]
  - Acute respiratory failure [Unknown]
  - Psychotic disorder [Recovering/Resolving]
  - Lung infiltration [Unknown]
  - Hypokalaemia [Recovered/Resolved]
